FAERS Safety Report 8507144-3 (Version None)
Quarter: 2012Q3

REPORT INFORMATION
  Report Type: 
  Country: None (occurrence: None)
  Receive Date: 20120703
  Receipt Date: 20120628
  Transmission Date: 20120928
  Serious: Yes (Hospitalization, Other)
  Sender: FDA-Public Use
  Company Number: 2012SP036731

PATIENT
  Sex: Female

DRUGS (3)
  1. PEG-INTRON [Suspect]
     Indication: HEPATITIS C
     Dates: start: 20120118
  2. TELAPREVIR [Suspect]
     Indication: HEPATITIS C
     Dates: start: 20120118
  3. RIBAVIRIN [Suspect]
     Indication: HEPATITIS C
     Dates: start: 20120118

REACTIONS (3)
  - RED BLOOD CELL COUNT DECREASED [None]
  - GAIT DISTURBANCE [None]
  - ASTHENIA [None]
